FAERS Safety Report 7772316-2 (Version None)
Quarter: 2011Q3

REPORT INFORMATION
  Report Type: 
  Country: None (occurrence: None)
  Receive Date: 20110922
  Receipt Date: 20100811
  Transmission Date: 20111222
  Serious: No
  Sender: FDA-Public Use
  Company Number: US-ASTRAZENECA-2007UW25205

PATIENT
  Age: 48 Year
  Sex: Male
  Weight: 131.5 kg

DRUGS (13)
  1. SEROQUEL [Suspect]
     Indication: ANXIETY
     Dosage: 100-200 MG
     Route: 048
     Dates: start: 20000101, end: 20070101
  2. GEODON [Concomitant]
     Dosage: 40-80 MG
     Dates: start: 20040101, end: 20070101
  3. SEROQUEL [Suspect]
     Route: 048
     Dates: start: 20060301
  4. RISPERDAL [Concomitant]
     Indication: DEPRESSION
     Dosage: 2-3 MG
     Dates: start: 20000101
  5. RISPERDAL [Concomitant]
     Indication: ANXIETY
     Dosage: 2-3 MG
     Dates: start: 20000101
  6. SEROQUEL [Suspect]
     Indication: DEPRESSION
     Dosage: 100-200 MG
     Route: 048
     Dates: start: 20000101, end: 20070101
  7. SEROQUEL [Suspect]
     Route: 048
     Dates: start: 20060301
  8. ZYPREXA [Concomitant]
     Indication: SCHIZOPHRENIA
     Dates: start: 20000101, end: 20020101
  9. ZYPREXA [Concomitant]
     Indication: ANXIETY
     Dates: start: 20000101, end: 20020101
  10. RISPERDAL [Concomitant]
     Indication: SCHIZOPHRENIA
     Dosage: 2-3 MG
     Dates: start: 20000101
  11. SEROQUEL [Suspect]
     Indication: SCHIZOPHRENIA
     Dosage: 100-200 MG
     Route: 048
     Dates: start: 20000101, end: 20070101
  12. SEROQUEL [Suspect]
     Route: 048
     Dates: start: 20060301
  13. ZYPREXA [Concomitant]
     Indication: DEPRESSION
     Dates: start: 20000101, end: 20020101

REACTIONS (4)
  - TYPE 2 DIABETES MELLITUS [None]
  - DIABETIC COMPLICATION [None]
  - OBESITY [None]
  - ADVERSE DRUG REACTION [None]
